FAERS Safety Report 10497492 (Version 1)
Quarter: 2014Q4

REPORT INFORMATION
  Report Type: Report from Study
  Country: US (occurrence: US)
  Receive Date: 20141006
  Receipt Date: 20141006
  Transmission Date: 20150528
  Serious: No
  Sender: FDA-Public Use
  Company Number: US-AMGEN INC.-USASL2014075196

PATIENT
  Age: 80 Year
  Sex: Female
  Weight: 73.47 kg

DRUGS (12)
  1. ATENOLOL. [Concomitant]
     Active Substance: ATENOLOL
     Dosage: UNK
  2. FLAXSEED [Concomitant]
     Active Substance: FLAX SEED
     Dosage: UNK
  3. L-LYSIN [Concomitant]
     Dosage: UNK
  4. TRAMADOL [Concomitant]
     Active Substance: TRAMADOL
     Dosage: UNK
  5. COCONUT OIL [Concomitant]
     Active Substance: COCONUT OIL
     Dosage: UNK
  6. INDAPAMIDE. [Concomitant]
     Active Substance: INDAPAMIDE
     Dosage: UNK
  7. VITAMIN D3 [Concomitant]
     Active Substance: CHOLECALCIFEROL
     Dosage: UNK
  8. CENTRUM SILVER                     /07431401/ [Concomitant]
     Dosage: UNK
  9. ENBREL [Suspect]
     Active Substance: ETANERCEPT
     Indication: RHEUMATOID ARTHRITIS
     Dosage: 25 MG TWICE A WEEK
     Route: 058
     Dates: start: 2007
  10. ALIGN [Concomitant]
     Active Substance: BIFIDOBACTERIUM LONGUM SUBSP. INFANTIS
     Dosage: UNK
  11. COLACE [Concomitant]
     Active Substance: DOCUSATE SODIUM
     Dosage: UNK
  12. POTASSIUM [Concomitant]
     Active Substance: POTASSIUM
     Dosage: UNK

REACTIONS (2)
  - Wrong technique in drug usage process [Unknown]
  - Injection site pain [Unknown]

NARRATIVE: CASE EVENT DATE: 201406
